FAERS Safety Report 21206217 (Version 8)
Quarter: 2023Q1

REPORT INFORMATION
  Report Type: Spontaneous
  Country: US (occurrence: US)
  Receive Date: 20220812
  Receipt Date: 20230208
  Transmission Date: 20230418
  Serious: Yes (Hospitalization, Other)
  Sender: FDA-Public Use
  Company Number: US-GLAXOSMITHKLINE-US2022116842

PATIENT

DRUGS (6)
  1. ZEJULA [Suspect]
     Active Substance: NIRAPARIB
     Indication: Neoplasm malignant
     Dosage: 200 MG, QD
     Route: 048
     Dates: start: 20220725
  2. ZEJULA [Suspect]
     Active Substance: NIRAPARIB
     Dosage: 200 MG, QD
     Route: 048
  3. ZEJULA [Suspect]
     Active Substance: NIRAPARIB
     Dosage: 100 MG
  4. ZEJULA [Suspect]
     Active Substance: NIRAPARIB
     Dosage: 200 MG, QD
     Route: 048
  5. ZEJULA [Suspect]
     Active Substance: NIRAPARIB
     Dosage: 100 MG, QD
     Route: 048
  6. ZEJULA [Suspect]
     Active Substance: NIRAPARIB
     Dosage: 100 MG, QD
     Route: 048
     Dates: end: 20230116

REACTIONS (9)
  - Platelet count decreased [Recovering/Resolving]
  - Platelet count abnormal [Recovered/Resolved]
  - Eructation [Recovered/Resolved]
  - Haematocrit decreased [Recovering/Resolving]
  - Heart rate increased [Recovered/Resolved]
  - Stomatitis [Recovered/Resolved]
  - Blood pressure fluctuation [Unknown]
  - Carbohydrate antigen 125 increased [Unknown]
  - Off label use [Unknown]
